FAERS Safety Report 15656155 (Version 1)
Quarter: 2018Q4

REPORT INFORMATION
  Report Type: Spontaneous
  Country: FR (occurrence: FR)
  Receive Date: 20181126
  Receipt Date: 20181126
  Transmission Date: 20190205
  Serious: Yes (Congenital Anomaly)
  Sender: FDA-Public Use
  Company Number: FR-009507513-1811FRA007960

PATIENT

DRUGS (1)
  1. NEXPLANON [Suspect]
     Active Substance: ETONOGESTREL
     Dosage: UNK
     Route: 064
     Dates: end: 20180823

REACTIONS (2)
  - Foetal exposure during pregnancy [Recovered/Resolved]
  - Congenital anomaly [Unknown]

NARRATIVE: CASE EVENT DATE: 20180814
